FAERS Safety Report 14028030 (Version 1)
Quarter: 2017Q3

REPORT INFORMATION
  Report Type: Spontaneous
  Country: US (occurrence: None)
  Receive Date: 20170930
  Receipt Date: 20170930
  Transmission Date: 20171128
  Serious: Yes (Hospitalization)
  Sender: FDA-Public Use
  Company Number: None

PATIENT
  Age: 92 Year
  Sex: Female
  Weight: 68 kg

DRUGS (1)
  1. MORPHINE [Suspect]
     Active Substance: MORPHINE
     Indication: PAIN
     Route: 048
     Dates: start: 20160907, end: 20160913

REACTIONS (5)
  - Slow response to stimuli [None]
  - Wrong technique in product usage process [None]
  - Hyperhidrosis [None]
  - Listless [None]
  - Overdose [None]

NARRATIVE: CASE EVENT DATE: 20160913
